FAERS Safety Report 7895781-9 (Version None)
Quarter: 2011Q4

REPORT INFORMATION
  Report Type: 
  Country: None (occurrence: None)
  Receive Date: 20111104
  Receipt Date: 20111104
  Transmission Date: 20120403
  Serious: Yes (Hospitalization)
  Sender: FDA-Public Use
  Company Number: None

PATIENT
  Sex: Female
  Weight: 87 kg

DRUGS (6)
  1. RITUXIMAB (MOAB C2B8 ANTI CD20, CHIMERIC) [Suspect]
     Dosage: 713 MG
  2. CYCLOPHOSPHAMIDE [Suspect]
     Dosage: 1430 MG
  3. VINCRISTINE SULFATE [Suspect]
     Dosage: 3.04 MG
  4. ETOPOSIDE [Suspect]
     Dosage: 380 MG
  5. DOXORUBICIN HCL [Suspect]
     Dosage: 76 MG
  6. PREDNISONE [Suspect]
     Dosage: 1200 MG

REACTIONS (2)
  - ILEUS [None]
  - FEBRILE NEUTROPENIA [None]
